FAERS Safety Report 9915767 (Version 1)
Quarter: 2014Q1

REPORT INFORMATION
  Report Type: Spontaneous
  Country: IN (occurrence: None)
  Receive Date: 20140218
  Receipt Date: 20140218
  Transmission Date: 20141002
  Serious: Yes (Other)
  Sender: FDA-Public Use
  Company Number: AUR-APL-2014-01655

PATIENT
  Age: 32 Year
  Sex: Male

DRUGS (2)
  1. QUETIAPINE [Suspect]
     Indication: PRODUCT USED FOR UNKNOWN INDICATION
     Dosage: 300 MG, 1 D, ORAL
     Route: 048
  2. VALPROATE SODIUM (AVLPROATE SODIUM) [Concomitant]

REACTIONS (8)
  - Self-medication [None]
  - Initial insomnia [None]
  - Memory impairment [None]
  - Personality disorder [None]
  - Drug dependence [None]
  - Drug dependence [None]
  - Irritability [None]
  - Feeling abnormal [None]
